FAERS Safety Report 4458327-3 (Version None)
Quarter: 2004Q3

REPORT INFORMATION
  Report Type: 
  Country: None (occurrence: None)
  Receive Date: 20040917
  Receipt Date: 20040330
  Transmission Date: 20050211
  Serious: Yes (Other)
  Sender: FDA-Public Use
  Company Number: US-JNJFOC-20040106105

PATIENT
  Age: 20 Year
  Sex: Female
  Weight: 63.5036 kg

DRUGS (2)
  1. TOPAMAX [Suspect]
     Indication: AFFECTIVE DISORDER
     Dates: start: 20030910
  2. SYNTHROID [Concomitant]

REACTIONS (1)
  - ANGLE CLOSURE GLAUCOMA [None]
